FAERS Safety Report 9510025 (Version 2)
Quarter: 2014Q3

REPORT INFORMATION
  Report Type: Spontaneous
  Country: US (occurrence: US)
  Receive Date: 20130909
  Receipt Date: 20140908
  Transmission Date: 20150326
  Serious: No
  Sender: FDA-Public Use
  Company Number: US-BRISTOL-MYERS SQUIBB COMPANY-18857904

PATIENT
  Age: 52 Year
  Sex: Female
  Weight: 115.64 kg

DRUGS (17)
  1. ESTRADIOL. [Concomitant]
     Active Substance: ESTRADIOL
  2. XANAX [Concomitant]
     Active Substance: ALPRAZOLAM
  3. FOLIC ACID. [Concomitant]
     Active Substance: FOLIC ACID
  4. CLONAZEPAM. [Concomitant]
     Active Substance: CLONAZEPAM
  5. TALWIN [Concomitant]
     Active Substance: PENTAZOCINE LACTATE
  6. OMEPRAZOLE. [Concomitant]
     Active Substance: OMEPRAZOLE
  7. CHANTIX [Concomitant]
     Active Substance: VARENICLINE TARTRATE
  8. ABILIFY [Suspect]
     Active Substance: ARIPIPRAZOLE
     Indication: SCHIZOPHRENIA
     Route: 048
     Dates: start: 2012
  9. EFFEXOR [Concomitant]
     Active Substance: VENLAFAXINE HYDROCHLORIDE
  10. LOSARTAN [Concomitant]
     Active Substance: LOSARTAN
  11. TOPAMAX [Concomitant]
     Active Substance: TOPIRAMATE
  12. MELOXICAM. [Concomitant]
     Active Substance: MELOXICAM
  13. TRAZODONE HYDROCHLORIDE. [Concomitant]
     Active Substance: TRAZODONE HYDROCHLORIDE
  14. SINGULAIR [Concomitant]
     Active Substance: MONTELUKAST SODIUM
  15. TIZANIDINE [Concomitant]
     Active Substance: TIZANIDINE
  16. LUMIGAN [Concomitant]
     Active Substance: BIMATOPROST
  17. HYDROXYZINE [Concomitant]
     Active Substance: HYDROXYZINE\HYDROXYZINE HYDROCHLORIDE

REACTIONS (1)
  - Tardive dyskinesia [Unknown]
